FAERS Safety Report 15198376 (Version 1)
Quarter: 2018Q3

REPORT INFORMATION
  Report Type: Spontaneous
  Country: US (occurrence: US)
  Receive Date: 20180725
  Receipt Date: 20180725
  Transmission Date: 20181010
  Serious: Yes (Other)
  Sender: FDA-Public Use
  Company Number: US-VIFOR (INTERNATIONAL) INC.-VIT-2018-07188

PATIENT
  Age: 73 Year
  Sex: Female

DRUGS (21)
  1. FERROUS SULFATE. [Concomitant]
     Active Substance: FERROUS SULFATE
  2. ALLOPURINOL. [Concomitant]
     Active Substance: ALLOPURINOL
  3. LANTUS [Concomitant]
     Active Substance: INSULIN GLARGINE
  4. SODIUM BICARBONATE. [Concomitant]
     Active Substance: SODIUM BICARBONATE
  5. VELTASSA [Suspect]
     Active Substance: PATIROMER
     Indication: HYPERKALAEMIA
     Route: 048
     Dates: start: 20170425
  6. DIOVAN [Concomitant]
     Active Substance: VALSARTAN
  7. HUMALOG [Concomitant]
     Active Substance: INSULIN LISPRO
  8. SYNTHROID [Concomitant]
     Active Substance: LEVOTHYROXINE SODIUM
  9. METAMUCIL [Concomitant]
     Active Substance: PLANTAGO SEED
  10. HYDRALAZINE HYDROCHLORIDE. [Concomitant]
     Active Substance: HYDRALAZINE HYDROCHLORIDE
  11. COLECALCIFEROL [Concomitant]
     Active Substance: CHOLECALCIFEROL
  12. ACETYLSALICYLIC ACID [Concomitant]
     Active Substance: ASPIRIN
  13. BUMETANIDE. [Concomitant]
     Active Substance: BUMETANIDE
  14. COREG [Concomitant]
     Active Substance: CARVEDILOL
  15. OMEPRAZOLE. [Concomitant]
     Active Substance: OMEPRAZOLE
  16. FOLIC ACID. [Concomitant]
     Active Substance: FOLIC ACID
  17. CALCITRIOL. [Concomitant]
     Active Substance: CALCITRIOL
  18. FLUOXETINE HYDROCHLORIDE. [Concomitant]
     Active Substance: FLUOXETINE HYDROCHLORIDE
  19. IMDUR [Concomitant]
     Active Substance: ISOSORBIDE MONONITRATE
  20. NORVASC [Concomitant]
     Active Substance: AMLODIPINE BESYLATE
  21. SIMVASTATIN. [Concomitant]
     Active Substance: SIMVASTATIN

REACTIONS (1)
  - Implantable defibrillator insertion [Unknown]

NARRATIVE: CASE EVENT DATE: 20180712
